FAERS Safety Report 8848699 (Version 1)
Quarter: 2012Q4

REPORT INFORMATION
  Report Type: Spontaneous
  Country: PL (occurrence: None)
  Receive Date: 20121015
  Receipt Date: 20121015
  Transmission Date: 20130627
  Serious: Yes (Hospitalization)
  Sender: FDA-Public Use
  Company Number: 2012DEPPL00454

PATIENT
  Age: 35 Year
  Sex: Male
  Weight: 79 kg

DRUGS (4)
  1. DEPOCYTE [Suspect]
     Indication: ACUTE LYMPHOCYTIC LEUKAEMIA
     Route: 037
     Dates: start: 2012, end: 20120829
  2. DEXAVEN (DEXAMETHASONE SODIUM PHOSPHATE) [Concomitant]
  3. AMPICILLIN (AMPICILLIN SODIUM) [Concomitant]
  4. KETOCONAZOL  (KETOCONAZOLE) [Concomitant]

REACTIONS (4)
  - Paresis cranial nerve [None]
  - Peripheral sensorimotor neuropathy [None]
  - Headache [None]
  - Neck pain [None]
